FAERS Safety Report 5337045-3 (Version None)
Quarter: 2007Q2

REPORT INFORMATION
  Report Type: 
  Country: None (occurrence: None)
  Receive Date: 20070524
  Receipt Date: 20070503
  Transmission Date: 20071010
  Serious: Yes (Other)
  Sender: FDA-Public Use
  Company Number: ENT 2007-0049

PATIENT
  Age: 66 Year
  Sex: Female

DRUGS (1)
  1. COMTAN [Suspect]
     Dosage: 200 ORAL
     Route: 048
     Dates: start: 20070301

REACTIONS (5)
  - ABDOMINAL PAIN [None]
  - ANXIETY [None]
  - CONFUSIONAL STATE [None]
  - DYSKINESIA [None]
  - NAUSEA [None]
